FAERS Safety Report 4720338-8 (Version None)
Quarter: 2005Q3

REPORT INFORMATION
  Report Type: 
  Country: None (occurrence: None)
  Receive Date: 20050721
  Receipt Date: 20050503
  Transmission Date: 20060218
  Serious: Yes (Hospitalization, Other)
  Sender: FDA-Public Use
  Company Number: US-MERCK-0505USA00491

PATIENT
  Age: 5 Year
  Sex: Male

DRUGS (2)
  1. SINGULAIR [Suspect]
     Indication: RHINORRHOEA
     Route: 048
     Dates: start: 20040401, end: 20040601
  2. CLARITIN [Concomitant]
     Indication: HYPERSENSITIVITY
     Route: 065

REACTIONS (3)
  - BRAIN NEOPLASM BENIGN [None]
  - CONVULSION [None]
  - EAR INFECTION [None]
